FAERS Safety Report 14170391 (Version 1)
Quarter: 2017Q4

REPORT INFORMATION
  Report Type: Spontaneous
  Country: US (occurrence: US)
  Receive Date: 20171108
  Receipt Date: 20171108
  Transmission Date: 20180321
  Serious: No
  Sender: FDA-Public Use
  Company Number: US-BAYER-2017-215359

PATIENT
  Age: 91 Year
  Sex: Female
  Weight: 68 kg

DRUGS (2)
  1. LATANOPROST. [Concomitant]
     Active Substance: LATANOPROST
  2. MIRALAX [Suspect]
     Active Substance: POLYETHYLENE GLYCOL 3350
     Indication: GASTROINTESTINAL DISORDER
     Dosage: UNK
     Route: 048

REACTIONS (1)
  - Incorrect drug administration duration [Unknown]
